FAERS Safety Report 10179493 (Version 1)
Quarter: 2014Q2

REPORT INFORMATION
  Report Type: Spontaneous
  Country: NZ (occurrence: NZ)
  Receive Date: 20140519
  Receipt Date: 20140519
  Transmission Date: 20141212
  Serious: Yes (Other)
  Sender: FDA-Public Use
  Company Number: NZ-BAXTER-2014BAX025265

PATIENT
  Sex: Male

DRUGS (2)
  1. DIANEAL (PD4) LOW CALCIUM SOLUTION WITH 1.36% GLUCOSE, DIALYSIS SOLUTI [Suspect]
     Indication: PERITONEAL DIALYSIS
     Route: 033
  2. EXTRANEAL, 7.5%W/V, DIALYSIS SOLUTION [Suspect]
     Indication: PERITONEAL DIALYSIS
     Route: 033

REACTIONS (3)
  - Cerebrovascular accident [Recovering/Resolving]
  - Confusional state [Unknown]
  - Infection [Recovered/Resolved]
